FAERS Safety Report 9827126 (Version 3)
Quarter: 2015Q3

REPORT INFORMATION
  Report Type: Spontaneous
  Country: US (occurrence: US)
  Receive Date: 20140117
  Receipt Date: 20150928
  Transmission Date: 20151125
  Serious: Yes (Death, Other)
  Sender: FDA-Public Use
  Company Number: US-GLAXOSMITHKLINE-A1038748A

PATIENT
  Age: 81 Year
  Sex: Male

DRUGS (2)
  1. PREDNISONE. [Concomitant]
     Active Substance: PREDNISONE
  2. PROMACTA [Suspect]
     Active Substance: ELTROMBOPAG OLAMINE
     Indication: IMMUNE THROMBOCYTOPENIC PURPURA
     Dosage: 50 MG, 1D
     Route: 048
     Dates: start: 20130612, end: 20150731

REACTIONS (3)
  - Fatigue [Unknown]
  - Muscular weakness [Unknown]
  - Acute myeloid leukaemia [Fatal]

NARRATIVE: CASE EVENT DATE: 20130820
